FAERS Safety Report 20060063 (Version 1)
Quarter: 2021Q4

REPORT INFORMATION
  Report Type: Spontaneous
  Country: SA (occurrence: SA)
  Receive Date: 20211111
  Receipt Date: 20211111
  Transmission Date: 20220304
  Serious: Yes (Death, Other)
  Sender: FDA-Public Use
  Company Number: SA-AMGEN-SAUSP2021173257

PATIENT

DRUGS (4)
  1. FILGRASTIM [Suspect]
     Active Substance: FILGRASTIM
     Indication: Prophylaxis
     Dosage: 5 MICROGRAM/KILOGRAM, QD
     Route: 058
  2. FLUDARABINE [Concomitant]
     Active Substance: FLUDARABINE PHOSPHATE
     Indication: Acute myeloid leukaemia
     Dosage: 30 MILLIGRAM/SQ. METER, QD
     Route: 042
  3. CYTARABINE [Concomitant]
     Active Substance: CYTARABINE
     Indication: Acute myeloid leukaemia
     Dosage: 2 GRAM PER SQUARE METRE, QD
     Route: 042
  4. AZACITIDINE [Concomitant]
     Active Substance: AZACITIDINE
     Indication: Acute myeloid leukaemia
     Dosage: 75 MILLIGRAM/SQ. METER, QD
     Route: 042

REACTIONS (10)
  - Death [Fatal]
  - Septic shock [Fatal]
  - Infection [Fatal]
  - Multiple organ dysfunction syndrome [Fatal]
  - Transaminases increased [Unknown]
  - Neutropenia [Unknown]
  - Acute myeloid leukaemia recurrent [Unknown]
  - Thrombocytopenia [Unknown]
  - Therapy partial responder [Unknown]
  - Therapy non-responder [Unknown]
